FAERS Safety Report 4598176-9 (Version None)
Quarter: 2005Q1

REPORT INFORMATION
  Report Type: 
  Country: None (occurrence: None)
  Receive Date: 20050302
  Receipt Date: 20050216
  Transmission Date: 20050727
  Serious: No
  Sender: FDA-Public Use
  Company Number: 2004AC01032

PATIENT
  Age: 60 Year
  Sex: Female
  Weight: 80 kg

DRUGS (5)
  1. SEROQUEL [Suspect]
     Indication: BIPOLAR I DISORDER
     Dosage: 100 MG PO
     Route: 048
     Dates: start: 20041101
  2. SEROQUEL [Suspect]
     Indication: BIPOLAR I DISORDER
     Dosage: 200 MG PO
     Route: 048
     Dates: end: 20041220
  3. DEPAKENE [Suspect]
     Indication: MOOD ALTERED
     Dosage: 1 G DAILY PO
     Route: 048
     Dates: start: 20040101, end: 20041212
  4. SIPRALEXA [Concomitant]
  5. EDRONAX [Concomitant]

REACTIONS (2)
  - DRUG INTERACTION [None]
  - EXTRAPYRAMIDAL DISORDER [None]
